FAERS Safety Report 9460676 (Version 1)
Quarter: 2013Q3

REPORT INFORMATION
  Report Type: Spontaneous
  Country: US (occurrence: US)
  Receive Date: 20130815
  Receipt Date: 20130815
  Transmission Date: 20140515
  Serious: Yes (Hospitalization, Other)
  Sender: FDA-Public Use
  Company Number: US-RB-057155-13

PATIENT
  Age: 0 None
  Sex: Male

DRUGS (6)
  1. SUBOXONE FILM [Suspect]
     Indication: DRUG DEPENDENCE
     Dosage: SUBOXONE FILM
     Route: 064
     Dates: start: 201211, end: 20130729
  2. SUBOXONE FILM [Suspect]
     Dosage: SUBOXONE FILM
     Route: 063
     Dates: start: 20130729
  3. BUSPAR [Suspect]
     Route: 064
     Dates: start: 201211, end: 20130729
  4. BUSPAR [Suspect]
     Indication: ANXIETY
     Route: 063
     Dates: start: 20130729
  5. ZOLOFT [Suspect]
     Indication: DEPRESSION
     Route: 064
     Dates: start: 201211, end: 20130729
  6. ZOLOFT [Suspect]
     Route: 063
     Dates: start: 20130729

REACTIONS (6)
  - Foetal exposure during pregnancy [Recovered/Resolved]
  - Respiratory disorder neonatal [Recovered/Resolved]
  - Drug withdrawal syndrome neonatal [Not Recovered/Not Resolved]
  - Exposure during breast feeding [Not Recovered/Not Resolved]
  - Jaundice neonatal [Not Recovered/Not Resolved]
  - Weight decrease neonatal [Not Recovered/Not Resolved]
